FAERS Safety Report 22175156 (Version 1)
Quarter: 2023Q2

REPORT INFORMATION
  Report Type: Spontaneous
  Country: US (occurrence: None)
  Receive Date: 20230405
  Receipt Date: 20230405
  Transmission Date: 20230722
  Serious: Yes (Other)
  Sender: FDA-Public Use
  Company Number: US-ROCHE-3323809

PATIENT
  Sex: Female

DRUGS (5)
  1. XOLAIR [Suspect]
     Active Substance: OMALIZUMAB
     Indication: Idiopathic urticaria
     Route: 058
     Dates: start: 202301
  2. XOLAIR [Suspect]
     Active Substance: OMALIZUMAB
  3. XOLAIR [Suspect]
     Active Substance: OMALIZUMAB
  4. EPINEPHRINE [Concomitant]
     Active Substance: EPINEPHRINE
  5. BENADRYL [Concomitant]
     Active Substance: DIPHENHYDRAMINE HYDROCHLORIDE

REACTIONS (6)
  - Anaphylactic reaction [Unknown]
  - Dyspnoea [Unknown]
  - Swelling [Unknown]
  - Urticaria [Unknown]
  - Eosinophilic oesophagitis [Unknown]
  - Dysphagia [Unknown]
